FAERS Safety Report 7075050-X (Version None)
Quarter: 2010Q4

REPORT INFORMATION
  Report Type: 
  Country: None (occurrence: None)
  Receive Date: 20101029
  Receipt Date: 20100412
  Transmission Date: 20110411
  Serious: No
  Sender: FDA-Public Use
  Company Number: US-WYE-H14654110

PATIENT
  Sex: Male

DRUGS (2)
  1. ADVIL PM [Suspect]
     Dosage: UNKNOWN
     Route: 048
  2. ADVIL [Suspect]
     Dosage: UNKNOWN
     Route: 048

REACTIONS (2)
  - DRUG HYPERSENSITIVITY [None]
  - MUSCLE SPASMS [None]
